FAERS Safety Report 19276869 (Version 2)
Quarter: 2021Q2

REPORT INFORMATION
  Report Type: Spontaneous
  Country: US (occurrence: US)
  Receive Date: 20210519
  Receipt Date: 20210614
  Transmission Date: 20210717
  Serious: No
  Sender: FDA-Public Use
  Company Number: US-ELI_LILLY_AND_COMPANY-US202105008510

PATIENT
  Sex: Female
  Weight: 81.63 kg

DRUGS (5)
  1. ADCIRCA [Suspect]
     Active Substance: TADALAFIL
     Indication: PULMONARY ARTERIAL HYPERTENSION
     Dosage: UNK UNK, UNKNOWN
     Route: 065
  2. ALLEGRA [Suspect]
     Active Substance: FEXOFENADINE HYDROCHLORIDE
     Indication: PRODUCT USED FOR UNKNOWN INDICATION
     Dosage: UNK UNK, UNKNOWN
     Route: 065
  3. REMODULIN [Concomitant]
     Active Substance: TREPROSTINIL
     Indication: PULMONARY ARTERIAL HYPERTENSION
     Dosage: UNK UNK, OTHER (72 NG/KG/MIN, CONTINUOUS)
     Route: 042
     Dates: start: 20160623
  4. REMODULIN [Concomitant]
     Active Substance: TREPROSTINIL
     Dosage: UNK UNK, OTHER (LOWERING DOSE)
     Route: 042
     Dates: start: 20160623
  5. ALLEGRA [Suspect]
     Active Substance: FEXOFENADINE HYDROCHLORIDE
     Dosage: UNK UNK, UNKNOWN (DOUBLED DOSE)
     Route: 065

REACTIONS (9)
  - Muscle spasms [Unknown]
  - Nasal congestion [Unknown]
  - Epistaxis [Unknown]
  - Erythema [Unknown]
  - Fatigue [Unknown]
  - Headache [Unknown]
  - Drug hypersensitivity [Unknown]
  - Pulmonary arterial pressure decreased [Unknown]
  - Vomiting [Unknown]
